FAERS Safety Report 17069631 (Version 1)
Quarter: 2019Q4

REPORT INFORMATION
  Report Type: Spontaneous
  Country: US (occurrence: US)
  Receive Date: 20191125
  Receipt Date: 20191125
  Transmission Date: 20200122
  Serious: No
  Sender: FDA-Public Use
  Company Number: US-ALLERGAN-1940026US

PATIENT
  Sex: Male
  Weight: 68.9 kg

DRUGS (8)
  1. MEMANTINE HCL UNK [Suspect]
     Active Substance: MEMANTINE HYDROCHLORIDE
     Indication: MEMORY IMPAIRMENT
     Dosage: 5 MG, BID
     Route: 048
     Dates: start: 2019, end: 2019
  2. FLUDROCORTISONE [Concomitant]
     Active Substance: FLUDROCORTISONE
  3. RASAGILINE. [Concomitant]
     Active Substance: RASAGILINE
  4. GOCOVRI [Suspect]
     Active Substance: AMANTADINE
     Indication: DYSKINESIA
     Dosage: 137 MG, QHS
     Route: 048
     Dates: start: 20190730
  5. MEMANTINE HCL UNK [Suspect]
     Active Substance: MEMANTINE HYDROCHLORIDE
     Indication: DYSKINESIA
     Dosage: 5 MG, QD
     Route: 048
  6. ALLOPURINOL. [Concomitant]
     Active Substance: ALLOPURINOL
  7. CARBIDOPA LEVODOPA [Concomitant]
     Active Substance: CARBIDOPA\LEVODOPA
  8. OXYBUTYNIN. [Concomitant]
     Active Substance: OXYBUTYNIN CHLORIDE

REACTIONS (3)
  - Vision blurred [Recovered/Resolved]
  - Feeling abnormal [Recovering/Resolving]
  - Therapeutic product effect increased [Unknown]
